FAERS Safety Report 6567706-X (Version None)
Quarter: 2010Q1

REPORT INFORMATION
  Report Type: 
  Country: None (occurrence: None)
  Receive Date: 20100203
  Receipt Date: 20100127
  Transmission Date: 20100710
  Serious: Yes (Other)
  Sender: FDA-Public Use
  Company Number: ES-PFIZER INC-2009283465

PATIENT
  Age: 46 Year
  Sex: Female
  Weight: 77 kg

DRUGS (3)
  1. TOVIAZ [Suspect]
     Indication: MIXED INCONTINENCE
     Dosage: 8 MG, 1X/DAY
     Route: 048
     Dates: start: 20090726, end: 20090726
  2. IRON [Concomitant]
     Dosage: UNK
     Route: 048
  3. PANTOPRAZOLE SODIUM [Concomitant]
     Dosage: UNK
     Route: 048

REACTIONS (5)
  - DYSPNOEA [None]
  - GENERALISED OEDEMA [None]
  - HEADACHE [None]
  - LARYNGEAL OEDEMA [None]
  - RETCHING [None]
